FAERS Safety Report 7436099-8 (Version None)
Quarter: 2011Q2

REPORT INFORMATION
  Report Type: 
  Country: None (occurrence: None)
  Receive Date: 20110425
  Receipt Date: 20110420
  Transmission Date: 20111010
  Serious: Yes (Life-Threatening, Hospitalization)
  Sender: FDA-Public Use
  Company Number: FR-PFIZER INC-2011085905

PATIENT
  Age: 4 Year
  Sex: Male

DRUGS (3)
  1. AERIUS [Concomitant]
     Indication: HYPERSENSITIVITY
     Dosage: UNK
     Dates: start: 20100201
  2. SOLUPRED [Suspect]
     Indication: HYPERSENSITIVITY
     Dosage: UNK
     Route: 048
     Dates: start: 20100202, end: 20100209
  3. ADVIL LIQUI-GELS [Suspect]
     Indication: PYREXIA
     Dosage: 1 DF, 4X/DAY FOR A DAYS AND A HALF
     Route: 048
     Dates: start: 20100203, end: 20100205

REACTIONS (2)
  - STREPTOCOCCAL SEPSIS [None]
  - SUPERINFECTION [None]
